FAERS Safety Report 4436857-8 (Version None)
Quarter: 2004Q3

REPORT INFORMATION
  Report Type: 
  Country: None (occurrence: None)
  Receive Date: 20040726
  Receipt Date: 20040518
  Transmission Date: 20050211
  Serious: No
  Sender: FDA-Public Use
  Company Number: USA040362774

PATIENT
  Age: 70 Year
  Sex: Female

DRUGS (9)
  1. FORTEO [Suspect]
     Indication: OSTEOPOROSIS
     Dates: start: 20040305
  2. CALCIUM [Concomitant]
  3. VITAMIN E [Concomitant]
  4. FOSAMAX [Concomitant]
  5. CENTURY SENIOR [Concomitant]
  6. CRANBERRY [Concomitant]
  7. TYLENOL [Concomitant]
  8. ADVIL [Concomitant]
  9. KEFLEX [Concomitant]

REACTIONS (11)
  - INJECTION SITE DISCOMFORT [None]
  - INJECTION SITE ERYTHEMA [None]
  - INJECTION SITE HAEMORRHAGE [None]
  - INJECTION SITE STINGING [None]
  - OEDEMA PERIPHERAL [None]
  - PAIN IN EXTREMITY [None]
  - PIGMENTATION DISORDER [None]
  - PRODUCTIVE COUGH [None]
  - TREMOR [None]
  - VISUAL DISTURBANCE [None]
  - WEIGHT DECREASED [None]
